FAERS Safety Report 6637931-8 (Version None)
Quarter: 2010Q1

REPORT INFORMATION
  Report Type: 
  Country: None (occurrence: None)
  Receive Date: 20100317
  Receipt Date: 20100309
  Transmission Date: 20100710
  Serious: Yes (Death)
  Sender: FDA-Public Use
  Company Number: PHHY2010AU15007

PATIENT
  Sex: Female

DRUGS (2)
  1. SYNTOCINON [Suspect]
  2. PROSTIN E2 [Suspect]

REACTIONS (3)
  - ANAPHYLACTOID SYNDROME OF PREGNANCY [None]
  - DRUG EXPOSURE DURING PREGNANCY [None]
  - UTERINE HYPERTONUS [None]
